FAERS Safety Report 14394426 (Version 1)
Quarter: 2018Q1

REPORT INFORMATION
  Report Type: Spontaneous
  Country: US (occurrence: US)
  Receive Date: 20180116
  Receipt Date: 20180116
  Transmission Date: 20180509
  Serious: No
  Sender: FDA-Public Use
  Company Number: US-REGENERON PHARMACEUTICALS, INC.-2017-28041

PATIENT

DRUGS (2)
  1. EYLEA [Suspect]
     Active Substance: AFLIBERCEPT
     Dosage: 2 MONTHS - A MONTH AND HALF AGO, THE LAST DOSE
     Dates: start: 2017, end: 2017
  2. EYLEA [Suspect]
     Active Substance: AFLIBERCEPT
     Indication: PRODUCT USED FOR UNKNOWN INDICATION
     Dosage: UNK

REACTIONS (5)
  - Eye disorder [Unknown]
  - Eye pain [Unknown]
  - Multiple allergies [Unknown]
  - Discomfort [Unknown]
  - Depressed mood [Unknown]
